FAERS Safety Report 7525432-4 (Version None)
Quarter: 2011Q2

REPORT INFORMATION
  Report Type: 
  Country: None (occurrence: None)
  Receive Date: 20110602
  Receipt Date: 20110602
  Transmission Date: 20111010
  Serious: Yes (Life-Threatening, Disabling)
  Sender: FDA-Public Use
  Company Number: None

PATIENT
  Sex: Female
  Weight: 80.9671 kg

DRUGS (2)
  1. ZOLOFT [Suspect]
     Indication: DEPRESSION
     Dosage: 50MG
     Dates: start: 20100101, end: 20110501
  2. EFFEXOR [Suspect]
     Indication: STRESS
     Dosage: 37.5-60MG
     Dates: start: 20110501

REACTIONS (21)
  - PAIN IN EXTREMITY [None]
  - DEPRESSED MOOD [None]
  - PALPITATIONS [None]
  - INSOMNIA [None]
  - PERSONALITY CHANGE [None]
  - AGGRESSION [None]
  - MORBID THOUGHTS [None]
  - HYPERHIDROSIS [None]
  - VISION BLURRED [None]
  - LOSS OF LIBIDO [None]
  - UNEVALUABLE EVENT [None]
  - AMNESIA [None]
  - NAUSEA [None]
  - DRY MOUTH [None]
  - HYPERSOMNIA [None]
  - TOBACCO USER [None]
  - DYSPHONIA [None]
  - IMPATIENCE [None]
  - EATING DISORDER [None]
  - PARTNER STRESS [None]
  - HEADACHE [None]
